FAERS Safety Report 12997660 (Version 1)
Quarter: 2016Q4

REPORT INFORMATION
  Report Type: Report from Study
  Country: AU (occurrence: AU)
  Receive Date: 20161205
  Receipt Date: 20161205
  Transmission Date: 20170207
  Serious: Yes (Hospitalization, Other)
  Sender: FDA-Public Use
  Company Number: AU-REGENERON PHARMACEUTICALS, INC.-2016-16511

PATIENT

DRUGS (1)
  1. EYLEA [Suspect]
     Active Substance: AFLIBERCEPT
     Indication: DIABETIC RETINAL OEDEMA
     Dosage: 2 MG, Q2MON
     Route: 031

REACTIONS (3)
  - Gangrene [Unknown]
  - Impaired healing [Not Recovered/Not Resolved]
  - Skin ulcer [Not Recovered/Not Resolved]
